FAERS Safety Report 4549326-1 (Version None)
Quarter: 2005Q1

REPORT INFORMATION
  Report Type: 
  Country: None (occurrence: None)
  Receive Date: 20050111
  Receipt Date: 20040823
  Transmission Date: 20050727
  Serious: Yes (Other)
  Sender: FDA-Public Use
  Company Number: PHNU2004DE02994

PATIENT
  Sex: Female

DRUGS (7)
  1. DIOVAN [Suspect]
     Indication: HYPERTENSION
     Dosage: 80 MG/D
     Route: 048
     Dates: start: 20040801
  2. ARAVA [Suspect]
     Dates: start: 20040101
  3. RAMIPRIL [Concomitant]
     Dates: start: 20030101, end: 20040801
  4. SYNTESTAN [Suspect]
  5. METHOTREXATE [Suspect]
  6. ENBREL [Concomitant]
  7. BISOPROLOL FUMARATE [Concomitant]

REACTIONS (1)
  - LYMPHOEDEMA [None]
